FAERS Safety Report 18403481 (Version 1)
Quarter: 2020Q4

REPORT INFORMATION
  Report Type: Spontaneous
  Country: US (occurrence: US)
  Receive Date: 20201019
  Receipt Date: 20201019
  Transmission Date: 20210114
  Serious: Yes (Hospitalization)
  Sender: FDA-Public Use
  Company Number: None

PATIENT
  Sex: Male

DRUGS (17)
  1. CYCLOBENZAPRINE. [Concomitant]
     Active Substance: CYCLOBENZAPRINE
  2. HYDROCOD/APAP [Concomitant]
  3. MONTELUKAST [Concomitant]
     Active Substance: MONTELUKAST SODIUM
  4. VITAMIN D [Concomitant]
     Active Substance: VITAMIN D NOS
  5. PRESERVISION [Concomitant]
     Active Substance: MINERALS\VITAMINS
  6. TAMSULOSIN [Concomitant]
     Active Substance: TAMSULOSIN
  7. FENTANYL. [Concomitant]
     Active Substance: FENTANYL
  8. GABAPENTIN. [Concomitant]
     Active Substance: GABAPENTIN
  9. CARVEDILOL. [Concomitant]
     Active Substance: CARVEDILOL
  10. CYANOCOBALAM [Concomitant]
     Active Substance: CYANOCOBALAMIN
  11. GLATIRAMER [Suspect]
     Active Substance: GLATIRAMER
     Indication: PRODUCT USED FOR UNKNOWN INDICATION
     Dosage: ?          OTHER FREQUENCY:TIW;?
     Route: 058
     Dates: start: 20190118
  12. LOSARTIN [Concomitant]
     Active Substance: LOSARTAN
  13. PAROXETINE. [Concomitant]
     Active Substance: PAROXETINE
  14. ZOLPIDEM [Concomitant]
     Active Substance: ZOLPIDEM TARTRATE
  15. COLESTIPOL [Concomitant]
     Active Substance: COLESTIPOL
  16. MULTIVIT [Concomitant]
     Active Substance: VITAMINS
  17. PRAVASTATIN. [Concomitant]
     Active Substance: PRAVASTATIN

REACTIONS (2)
  - Fall [None]
  - Seizure [None]
